FAERS Safety Report 11127537 (Version 1)
Quarter: 2015Q2

REPORT INFORMATION
  Report Type: Spontaneous
  Country: US (occurrence: None)
  Receive Date: 20150520
  Receipt Date: 20150520
  Transmission Date: 20150821
  Serious: Yes (Other)
  Sender: FDA-Public Use
  Company Number: None

PATIENT
  Age: 51 Year
  Sex: Female

DRUGS (16)
  1. IBUPROFEN (MOTRIN) [Concomitant]
  2. NAPROXEN (NAPROSYN) [Concomitant]
  3. SUMATRIPTAN (IMITREX) [Concomitant]
  4. TERIFLUNOMIDE (AUBAGIO) [Concomitant]
  5. CYANOCBALAMIN (VITAMIN B-12) [Concomitant]
  6. AMPYRA [Suspect]
     Active Substance: DALFAMPRIDINE
     Indication: MULTIPLE SCLEROSIS
     Route: 048
     Dates: start: 201405
  7. ZANAFLEX [Concomitant]
     Active Substance: TIZANIDINE HYDROCHLORIDE
  8. CHOLESTYRAMINE. [Concomitant]
     Active Substance: CHOLESTYRAMINE
  9. LEVOTHYROXINE (LEVOTHROID/SYNTHROID) [Concomitant]
  10. RITUXIMAB (RITUXAN) [Concomitant]
  11. QUETRAN [Concomitant]
  12. CETIRIZINE (ZYRTEC) [Concomitant]
  13. OXYBUTYNIN (DITROPAN XL) [Concomitant]
  14. CITALOPRAM (CELEXA) [Concomitant]
  15. MODAFINIL (PROVIGIL) [Concomitant]
  16. MOBIC [Concomitant]
     Active Substance: MELOXICAM

REACTIONS (2)
  - Urinary tract infection [None]
  - Proteus test positive [None]

NARRATIVE: CASE EVENT DATE: 20150428
